FAERS Safety Report 15068034 (Version 1)
Quarter: 2018Q2

REPORT INFORMATION
  Report Type: Spontaneous
  Country: BR (occurrence: BR)
  Receive Date: 20180626
  Receipt Date: 20180626
  Transmission Date: 20180711
  Serious: Yes (Other)
  Sender: FDA-Public Use
  Company Number: BR-ELI_LILLY_AND_COMPANY-BR201806001421

PATIENT
  Age: 75 Year
  Sex: Female
  Weight: 44 kg

DRUGS (2)
  1. FORTEO [Suspect]
     Active Substance: TERIPARATIDE
     Indication: PRODUCT USED FOR UNKNOWN INDICATION
     Dosage: UNK, UNKNOWN
     Route: 065
     Dates: end: 201709
  2. TAPAZOL                            /00022901/ [Concomitant]
     Indication: HYPERTHYROIDISM
     Dosage: UNK, UNKNOWN
     Route: 065

REACTIONS (3)
  - Pain [Unknown]
  - Gait disturbance [Unknown]
  - Femur fracture [Unknown]

NARRATIVE: CASE EVENT DATE: 201709
